FAERS Safety Report 9640932 (Version 2)
Quarter: 2013Q4

REPORT INFORMATION
  Report Type: Spontaneous
  Country: IT (occurrence: IT)
  Receive Date: 20131023
  Receipt Date: 20131230
  Transmission Date: 20140711
  Serious: Yes (Other)
  Sender: FDA-Public Use
  Company Number: IT-PFIZER INC-2013301130

PATIENT
  Age: 46 Year
  Sex: Female

DRUGS (4)
  1. ADRIBLASTINA [Suspect]
     Indication: B-CELL LYMPHOMA
     Dosage: 85 MG, UNK
     Route: 042
     Dates: start: 20130724, end: 20130724
  2. DELTACORTENE [Concomitant]
     Dosage: 50 MG, UNK
     Route: 048
     Dates: start: 20130724, end: 20130729
  3. CYCLOPHOSPHAMIDE [Concomitant]
     Indication: NON-HODGKIN^S LYMPHOMA
     Dosage: 1275 MG, UNK
     Route: 042
     Dates: start: 20130724, end: 20130724
  4. VINCRISTINE SULFATE [Concomitant]
     Indication: NON-HODGKIN^S LYMPHOMA
     Dosage: 2 MG, UNK
     Route: 042
     Dates: start: 20130724, end: 20130724

REACTIONS (2)
  - Hypertension [Recovered/Resolved]
  - Headache [Recovered/Resolved]
